FAERS Safety Report 9158499 (Version 1)
Quarter: 2013Q1

REPORT INFORMATION
  Report Type: Spontaneous
  Country: US (occurrence: US)
  Receive Date: 20130312
  Receipt Date: 20130312
  Transmission Date: 20140127
  Serious: No
  Sender: FDA-Public Use
  Company Number: US-BAYER-2013-030146

PATIENT
  Sex: Male

DRUGS (1)
  1. FINACEA [Suspect]

REACTIONS (1)
  - Drug ineffective [None]
